FAERS Safety Report 8009339-4 (Version None)
Quarter: 2011Q4

REPORT INFORMATION
  Report Type: 
  Country: None (occurrence: None)
  Receive Date: 20111227
  Receipt Date: 20111215
  Transmission Date: 20120403
  Serious: Yes (Hospitalization)
  Sender: FDA-Public Use
  Company Number: SE-SANOFI-AVENTIS-2011SA006747

PATIENT
  Age: 67 Year
  Sex: Female

DRUGS (13)
  1. DESMOPRESSIN ACETATE [Suspect]
     Indication: DIABETES INSIPIDUS
     Route: 045
     Dates: start: 19780101, end: 20080512
  2. DESMOPRESSIN ACETATE [Suspect]
     Route: 045
     Dates: start: 20090513
  3. ESTRADERM [Concomitant]
     Dates: start: 19780101
  4. LEVOTHYROXINE SODIUM [Concomitant]
     Dates: start: 20050222
  5. GESTAPURAN [Concomitant]
     Dates: start: 19780101
  6. SOMATROPIN [Concomitant]
     Indication: ADENOMA BENIGN
     Dates: start: 19960305
  7. CALCIUM CARBONATE [Concomitant]
     Dates: start: 19971101
  8. CORTISONE ACETATE [Concomitant]
     Dates: start: 20090513
  9. KAVEPENIN [Concomitant]
     Dates: start: 19981201
  10. SIMVASTATIN [Concomitant]
     Dates: start: 20100516
  11. VIBRAMYCIN [Concomitant]
     Dates: start: 19980209
  12. MIRTAZAPINE [Concomitant]
     Dates: start: 20100516
  13. ASPIRIN [Concomitant]
     Dates: start: 20100516

REACTIONS (2)
  - BLOOD SODIUM DECREASED [None]
  - OVERDOSE [None]
